FAERS Safety Report 13984293 (Version 1)
Quarter: 2017Q3

REPORT INFORMATION
  Report Type: Spontaneous
  Country: US (occurrence: US)
  Receive Date: 20170918
  Receipt Date: 20170918
  Transmission Date: 20171128
  Serious: No
  Sender: FDA-Public Use
  Company Number: US-BAYER-2017-167218

PATIENT
  Age: 30 Year
  Sex: Male

DRUGS (1)
  1. GADAVIST [Suspect]
     Active Substance: GADOBUTROL
     Dosage: 65 ML, ONCE
     Route: 042

REACTIONS (9)
  - Feeling hot [None]
  - Ear pruritus [None]
  - Throat irritation [None]
  - Urticaria [None]
  - Pruritus [None]
  - Ear discomfort [None]
  - Cough [None]
  - Erythema [None]
  - Hyperhidrosis [None]

NARRATIVE: CASE EVENT DATE: 20170830
